FAERS Safety Report 23515273 (Version 2)
Quarter: 2024Q1

REPORT INFORMATION
  Report Type: Report from Study
  Country: US (occurrence: US)
  Receive Date: 20240213
  Receipt Date: 20240327
  Transmission Date: 20240409
  Serious: Yes (Other)
  Sender: FDA-Public Use
  Company Number: US-ABBVIE-5630326

PATIENT
  Sex: Male

DRUGS (2)
  1. VENCLEXTA [Suspect]
     Active Substance: VENETOCLAX
     Indication: Thalassaemia
     Dosage: TAKE 1 TABLET BY MOUTH TWICE A DAY; 100 MG
     Route: 048
  2. VIDAZA [Concomitant]
     Active Substance: AZACITIDINE
     Indication: Product used for unknown indication
     Dosage: 5 SHOTS/INJECTIONS ONE RIGHT AFTER THE OTHER EVERY DAY.

REACTIONS (3)
  - Leukaemia recurrent [Unknown]
  - Off label use [Unknown]
  - Leukopenia [Unknown]
